FAERS Safety Report 4830893-5 (Version None)
Quarter: 2005Q4

REPORT INFORMATION
  Report Type: 
  Country: None (occurrence: None)
  Receive Date: 20051117
  Receipt Date: 20051109
  Transmission Date: 20060501
  Serious: Yes (Hospitalization)
  Sender: FDA-Public Use
  Company Number: US-MERCK-0511USA01766

PATIENT
  Age: 51 Year
  Sex: Female
  Weight: 123 kg

DRUGS (10)
  1. VIOXX [Suspect]
     Indication: ARTHRITIS
     Route: 048
     Dates: start: 20010601, end: 20040901
  2. K-DUR 10 [Concomitant]
     Route: 065
  3. LASIX [Concomitant]
     Route: 065
  4. ACCUPRIL [Concomitant]
     Route: 065
  5. NORVASC [Concomitant]
     Route: 065
  6. AXID [Concomitant]
     Route: 065
  7. SERZONE [Concomitant]
     Route: 065
  8. PREMPRO [Concomitant]
     Route: 065
  9. NEXIUM [Concomitant]
     Route: 065
  10. WELLBUTRIN [Concomitant]
     Route: 065

REACTIONS (1)
  - MYOCARDIAL INFARCTION [None]
